FAERS Safety Report 21352836 (Version 2)
Quarter: 2023Q2

REPORT INFORMATION
  Report Type: Spontaneous
  Country: ES (occurrence: ES)
  Receive Date: 20220920
  Receipt Date: 20230502
  Transmission Date: 20230721
  Serious: Yes (Other)
  Sender: FDA-Public Use
  Company Number: ES-SUN PHARMACEUTICAL INDUSTRIES LTD-2006RR-01892

PATIENT
  Age: 4 Year
  Sex: Male
  Weight: 20 kg

DRUGS (9)
  1. VALPROIC ACID [Interacting]
     Active Substance: VALPROIC ACID
     Indication: Epilepsy
     Dosage: 45 MG/KG, UNK
     Route: 042
  2. VALPROIC ACID [Interacting]
     Active Substance: VALPROIC ACID
     Dosage: 80 MG/KG, UNK
     Route: 042
  3. VALPROIC ACID [Interacting]
     Active Substance: VALPROIC ACID
     Dosage: 30 MG/KG, UNK
     Route: 048
  4. VALPROIC ACID [Interacting]
     Active Substance: VALPROIC ACID
     Dosage: 50 MG/KG, UNK
     Route: 048
  5. MEROPENEM [Interacting]
     Active Substance: MEROPENEM
     Indication: Product used for unknown indication
     Dosage: 120 MG/KG, QD
     Route: 065
  6. MIDAZOLAM HYDROCHLORIDE [Concomitant]
     Active Substance: MIDAZOLAM HYDROCHLORIDE
     Indication: Product used for unknown indication
     Route: 045
  7. CLONAZEPAM [Concomitant]
     Active Substance: CLONAZEPAM
     Indication: Product used for unknown indication
     Route: 042
  8. DIAZEPAM [Concomitant]
     Active Substance: DIAZEPAM
     Indication: Product used for unknown indication
     Route: 042
  9. CEFOTAXIME SODIUM [Concomitant]
     Active Substance: CEFOTAXIME SODIUM
     Indication: Haemophilus infection
     Route: 065

REACTIONS (3)
  - Drug interaction [Unknown]
  - Anticonvulsant drug level below therapeutic [Unknown]
  - Seizure [Unknown]
